FAERS Safety Report 4300306-0 (Version None)
Quarter: 2004Q1

REPORT INFORMATION
  Report Type: 
  Country: None (occurrence: None)
  Receive Date: 20040220
  Receipt Date: 20040212
  Transmission Date: 20041129
  Serious: Yes (Other)
  Sender: FDA-Public Use
  Company Number: WAES 0402USA01005

PATIENT
  Age: 4 Year
  Sex: Male

DRUGS (2)
  1. ALBUTEROL [Concomitant]
  2. SINGULAIR [Suspect]
     Indication: ASTHMA
     Route: 048
     Dates: start: 20020201

REACTIONS (1)
  - AMAUROSIS FUGAX [None]
